FAERS Safety Report 4900831-5 (Version None)
Quarter: 2006Q1

REPORT INFORMATION
  Report Type: 
  Country: None (occurrence: None)
  Receive Date: 20060201
  Receipt Date: 20060113
  Transmission Date: 20060701
  Serious: Yes (Death, Hospitalization)
  Sender: FDA-Public Use
  Company Number: RU200512000467

PATIENT
  Age: 53 Year
  Sex: Female

DRUGS (8)
  1. PEMETREXED (PEMETREXED)VIAL [Suspect]
     Indication: BREAST CANCER
     Dosage: 3090 MG, ONCE EVERY 21 DAY, INTRAVENOUS
     Route: 042
     Dates: start: 20050830, end: 20051122
  2. CYCLOPHOSPHAMIDE [Suspect]
     Indication: BREAST CANCER
     Dosage: 1030 MG, ONCE EVERY 21 DAY, INTRAVENOUS
     Route: 042
     Dates: start: 20050830, end: 20051122
  3. FOLIC ACID [Concomitant]
  4. VITAMIN B12 [Concomitant]
  5. DEXAMETHASONE [Concomitant]
  6. FOLIC ACID [Concomitant]
  7. VITAMIN B12 [Concomitant]
  8. DEXAMETHASONE [Concomitant]

REACTIONS (9)
  - AGRANULOCYTOSIS [None]
  - CACHEXIA [None]
  - DRUG TOXICITY [None]
  - GASTROINTESTINAL HAEMORRHAGE [None]
  - HEPATITIS TOXIC [None]
  - HEPATORENAL FAILURE [None]
  - LOSS OF CONSCIOUSNESS [None]
  - MULTI-ORGAN FAILURE [None]
  - PNEUMONIA [None]
